FAERS Safety Report 12065888 (Version 2)
Quarter: 2016Q4

REPORT INFORMATION
  Report Type: Spontaneous
  Country: US (occurrence: US)
  Receive Date: 20160211
  Receipt Date: 20161230
  Transmission Date: 20170206
  Serious: No
  Sender: FDA-Public Use
  Company Number: US-PFIZER INC-2016078573

PATIENT
  Age: 70 Year
  Sex: Female
  Weight: 60.33 kg

DRUGS (42)
  1. ZOFRAN [Concomitant]
     Active Substance: ONDANSETRON HYDROCHLORIDE
     Indication: NAUSEA
     Dosage: 4 MG, AS NEEDED, (EVERY 8 HOURS)
     Route: 048
  2. LYRICA [Suspect]
     Active Substance: PREGABALIN
     Indication: PAIN
     Dosage: 100 MG, 1X/DAY (1 CAP AT BEDTIME)
     Route: 048
  3. NEXIUM [Concomitant]
     Active Substance: ESOMEPRAZOLE MAGNESIUM
     Dosage: 40 MG, DAILY
  4. LAMOTRIGINE. [Concomitant]
     Active Substance: LAMOTRIGINE
     Dosage: 150 MG, DAILY, (AT BED TIME)
     Route: 048
  5. DELTASONE [Concomitant]
     Active Substance: PREDNISONE
     Dosage: 5 MG, 2X/DAY, (DAILY)
     Route: 048
  6. LYRICA [Suspect]
     Active Substance: PREGABALIN
     Indication: FIBROMYALGIA
     Dosage: 100 MG, UNK
  7. PROAIR HFA [Concomitant]
     Active Substance: ALBUTEROL SULFATE
     Indication: WHEEZING
     Dosage: UNK UNK, AS NEEDED (90 MCG/ACTUATION INHALER; 2 PUFFS EVERY 6 HOURS)
     Route: 055
  8. XANAX [Concomitant]
     Active Substance: ALPRAZOLAM
     Dosage: 0.5 MG, AS NEEDED, (1 TAB THREE TIMES DAILY)
     Route: 048
  9. ZYRTEC [Concomitant]
     Active Substance: CETIRIZINE HYDROCHLORIDE
     Dosage: 10 MG, AS NEEDED, (DAILY)
     Route: 048
  10. RESTASIS [Concomitant]
     Active Substance: CYCLOSPORINE
     Dosage: 2 GTT, 2X/DAY, (DAILY)
     Route: 047
  11. REFRESH P.M. [Concomitant]
     Active Substance: MINERAL OIL\PETROLATUM
     Dosage: UNK, 1X/DAY (0.25 INCHES TO BOTH EYES AT BEDTIME)
     Route: 047
  12. SYNTHROID [Concomitant]
     Active Substance: LEVOTHYROXINE SODIUM
     Dosage: 168 UG, UNK (ONE-HALF TABLET BY MOUTH DAILY ON SUNDAY)
     Route: 048
  13. LAMICTAL [Concomitant]
     Active Substance: LAMOTRIGINE
     Dosage: 150 MG, 1X/DAY
     Route: 048
  14. TYLENOL WITH CODEINE [Concomitant]
     Active Substance: ACETAMINOPHEN\CODEINE PHOSPHATE
     Dosage: 2 DF, AS NEEDED, [PARACETAMOL: 300MG]/[CODEINE PHOSPHATE: 30MG], (MAX OF 4000 MG OF ACETAMINOPHEN)
     Route: 048
  15. NEXIUM [Concomitant]
     Active Substance: ESOMEPRAZOLE MAGNESIUM
     Dosage: 40 MG, 2X/DAY, (DAILY)
  16. MELOXICAM. [Concomitant]
     Active Substance: MELOXICAM
     Dosage: 7.5 MG, DAILY
     Route: 048
  17. VITAMIN D2 [Concomitant]
     Active Substance: ERGOCALCIFEROL
     Dosage: 50000 IU, DAILY (EVERY 7 DAYS)
     Route: 048
  18. RUBRAMIN [Concomitant]
     Dosage: 1 ML, MONTHLY, (EVERY 30 DAYS)
     Route: 030
  19. LORAZEPAM. [Concomitant]
     Active Substance: LORAZEPAM
     Dosage: 0.4 MG, AS NEEDED
  20. ZOLOFT [Concomitant]
     Active Substance: SERTRALINE HYDROCHLORIDE
     Dosage: 4 MG, AS NEEDED
  21. COLACE [Concomitant]
     Active Substance: DOCUSATE SODIUM
     Indication: CONSTIPATION
     Dosage: 100 MG, AS NEEDED, (DAILY)
     Route: 048
  22. BACTROBAN [Concomitant]
     Active Substance: MUPIROCIN\MUPIROCIN CALCIUM
     Dosage: 2 %, DAILY (APPLY DAILY)
     Route: 061
  23. TYLENOL WITH CODEINE [Concomitant]
     Active Substance: ACETAMINOPHEN\CODEINE PHOSPHATE
     Indication: PAIN
     Dosage: 2 DF, 1X/DAY (2 TABLETS AT NIGHT)
  24. ISOPTO TEARS [Concomitant]
     Active Substance: HYPROMELLOSE 2910 (4000 MPA.S)
     Dosage: 1 GTT, 4X/DAY, (DAILY)
     Route: 047
  25. CALCIUM + VITAMIN D3 [Concomitant]
     Active Substance: CALCIUM CARBONATE\CHOLECALCIFEROL
     Dosage: 1 DF, 2X/DAY [CALCIUM CARBONATE 600MG]/[COLECALCIFEROL 600UNITS] (4000 MCG), (DAILY)
     Route: 048
  26. ZADITOR [Concomitant]
     Active Substance: KETOTIFEN FUMARATE
     Dosage: 2 GTT, 2X/DAY (0.025 %; 1 DROP TO BOTH EYES TWICE DAILY)
     Route: 047
  27. ANTIVERT [Concomitant]
     Active Substance: MECLIZINE HYDROCHLORIDE
     Indication: DIZZINESS
     Dosage: 12.5 MG, AS NEEDED, (DAILY)
  28. ZANAFLEX [Concomitant]
     Active Substance: TIZANIDINE HYDROCHLORIDE
     Dosage: 2 MG, AS NEEDED, (1-2 TABS)
     Route: 048
  29. RETIN-A [Concomitant]
     Active Substance: TRETINOIN
     Dosage: UNK UNK, 1X/DAY (0.1% APPLY TO AFFECTED AREA AT BEDTIME DAILY)
     Route: 061
  30. TIZANIDINE. [Concomitant]
     Active Substance: TIZANIDINE
     Dosage: 2 MG, TAKES 1 TO 2 TABLETS DAILY
  31. PREDNISONE. [Concomitant]
     Active Substance: PREDNISONE
     Dosage: 20 MG, DAILY
  32. PREDNISONE. [Concomitant]
     Active Substance: PREDNISONE
     Dosage: 5 MG, 2X/DAY, (DAILY)
     Route: 048
  33. SYNTHROID [Concomitant]
     Active Substance: LEVOTHYROXINE SODIUM
     Dosage: 112 UG, 1X/DAY (MONDAY, THU, SATURDAY)
     Route: 048
  34. DIAMODE [Concomitant]
     Dosage: 2 MG, AS NEEDED
     Route: 048
  35. ZANTAC [Concomitant]
     Active Substance: RANITIDINE HYDROCHLORIDE
     Dosage: 150 MG, 2X/DAY, (DAILY)
     Route: 048
  36. FOLIC ACID. [Concomitant]
     Active Substance: FOLIC ACID
     Dosage: 800 UG, 1X/DAY (AT BEDTIME)
     Route: 048
  37. VENTOLIN HFA [Concomitant]
     Active Substance: ALBUTEROL SULFATE
     Indication: WHEEZING
     Dosage: UNK UNK, AS NEEDED ( 90MCG/ACT EVERY 6 HOURS)
     Route: 055
  38. NORCO [Concomitant]
     Active Substance: ACETAMINOPHEN\HYDROCODONE BITARTRATE
     Dosage: 1 DF, AS NEEDED, (EVERY 8 HOURS), [HYDROCODONE BITARTRATE: 5MG]/[PARACETAMOL: 325MG]
     Route: 048
  39. MOBIC [Concomitant]
     Active Substance: MELOXICAM
     Dosage: 7.5 MG, DAILY
     Route: 048
  40. PROTOPIC [Concomitant]
     Active Substance: TACROLIMUS
     Dosage: UNK, (APPLY TO AFFECTED AREA)
  41. VITAMIN B12 [Concomitant]
     Active Substance: CYANOCOBALAMIN
     Dosage: 1 ML, MONTHLY, (EVERY 30 DAYS)
     Route: 030
  42. HYDROCORTISONE. [Concomitant]
     Active Substance: HYDROCORTISONE
     Dosage: 2.5 %, 2X/DAY, (DAILY)
     Route: 061

REACTIONS (1)
  - Pain [Unknown]
